FAERS Safety Report 23540608 (Version 1)
Quarter: 2024Q1

REPORT INFORMATION
  Report Type: Spontaneous
  Country: US (occurrence: US)
  Receive Date: 20240219
  Receipt Date: 20240219
  Transmission Date: 20240410
  Serious: No
  Sender: FDA-Public Use
  Company Number: US-Stemline Therapeutics, Inc.-2023ST004852

PATIENT
  Age: 57 Year
  Sex: Female

DRUGS (2)
  1. ORSERDU [Suspect]
     Active Substance: ELACESTRANT
     Indication: Product used for unknown indication
     Dosage: 345MG ONCE DAILY
     Route: 048
     Dates: start: 20230901, end: 20231016
  2. CAPECITABINE [Concomitant]
     Active Substance: CAPECITABINE
     Indication: Breast cancer female
     Dosage: 1500MG BY MOUTH TWICE A DAY FOR 14 DAYS, THEN 7 DAYS OFF
     Route: 048
     Dates: start: 20231031

REACTIONS (2)
  - Blood test abnormal [Unknown]
  - Haemoglobin abnormal [Unknown]
